FAERS Safety Report 6917792-X (Version None)
Quarter: 2010Q3

REPORT INFORMATION
  Report Type: 
  Country: None (occurrence: None)
  Receive Date: 20100806
  Receipt Date: 20100714
  Transmission Date: 20110219
  Serious: No
  Sender: FDA-Public Use
  Company Number: TCI2010A02582

PATIENT
  Age: 75 Year
  Sex: Male

DRUGS (6)
  1. LANSOPRAZOLE [Suspect]
     Dosage: 15 MG (15 MG, 1 IN 1 D) PER ORAL
     Route: 048
  2. CALSLOT (MANIDIPINE HYDROCHLORIDE) [Concomitant]
  3. DOXAZOSIN MESYLATE [Concomitant]
  4. FLUITRAN (TRICHLORMETHIAZIDE) [Concomitant]
  5. CEROCRAL (IFENPRODIL TARTRATE) [Concomitant]
  6. PRAVASTATIN [Concomitant]

REACTIONS (1)
  - VISION BLURRED [None]
